FAERS Safety Report 22103334 (Version 1)
Quarter: 2023Q1

REPORT INFORMATION
  Report Type: Spontaneous
  Country: US (occurrence: None)
  Receive Date: 20230315
  Receipt Date: 20230315
  Transmission Date: 20230417
  Serious: Yes (Other)
  Sender: FDA-Public Use
  Company Number: None

PATIENT
  Age: 49 Year
  Sex: Female
  Weight: 67.5 kg

DRUGS (2)
  1. METHYLPHENIDATE HYDROCHLORIDE [Suspect]
     Active Substance: METHYLPHENIDATE HYDROCHLORIDE
     Indication: Attention deficit hyperactivity disorder
     Dosage: OTHER QUANTITY : 1 TABLET(S);?
     Route: 048
     Dates: start: 20230225, end: 20230312
  2. METHYLPHENIDATE HYDROCHLORIDE [Suspect]
     Active Substance: METHYLPHENIDATE HYDROCHLORIDE
     Indication: Depression

REACTIONS (12)
  - Product substitution issue [None]
  - Feeling abnormal [None]
  - Abdominal pain [None]
  - Diarrhoea [None]
  - Flatulence [None]
  - Fatigue [None]
  - Withdrawal syndrome [None]
  - Product formulation issue [None]
  - Gastrointestinal disorder [None]
  - Product dose omission in error [None]
  - Product availability issue [None]
  - Insurance issue [None]

NARRATIVE: CASE EVENT DATE: 20230311
